FAERS Safety Report 13822679 (Version 3)
Quarter: 2017Q3

REPORT INFORMATION
  Report Type: Report from Study
  Country: US (occurrence: US)
  Receive Date: 20170801
  Receipt Date: 20170824
  Transmission Date: 20171127
  Serious: Yes (Hospitalization)
  Sender: FDA-Public Use
  Company Number: US-ACTELION-A-US2017-156574

PATIENT
  Age: 68 Year
  Sex: Female

DRUGS (17)
  1. MULTAQ [Concomitant]
     Active Substance: DRONEDARONE
     Dosage: UNK, BID
     Dates: end: 201707
  2. CRESTOR [Concomitant]
     Active Substance: ROSUVASTATIN CALCIUM
     Dosage: 10 MG, QD
  3. ASPIRIN. [Concomitant]
     Active Substance: ASPIRIN
     Dosage: 81 MG, QD
  4. IRBESARTAN. [Concomitant]
     Active Substance: IRBESARTAN
     Dosage: UNK
  5. PRADAXA [Concomitant]
     Active Substance: DABIGATRAN ETEXILATE MESYLATE
     Dosage: 150 MG, BID
  6. METOPROLOL. [Concomitant]
     Active Substance: METOPROLOL
     Dosage: 50 MG, QD
  7. VITAMIN D [Concomitant]
     Active Substance: CHOLECALCIFEROL
     Dosage: UNK
  8. OPSUMIT [Suspect]
     Active Substance: MACITENTAN
     Indication: PULMONARY HYPERTENSION
     Dosage: 10 MG, QD
     Route: 048
     Dates: start: 20170615
  9. SILDENAFIL CITRATE. [Concomitant]
     Active Substance: SILDENAFIL CITRATE
     Dosage: 20 MG, TID
     Dates: start: 201704
  10. METFORMIN [Concomitant]
     Active Substance: METFORMIN HYDROCHLORIDE
  11. VITAMIN B [Concomitant]
     Active Substance: VITAMIN B
     Dosage: UNK
  12. FISH OIL [Concomitant]
     Active Substance: FISH OIL
     Dosage: UNK
  13. IRON [Concomitant]
     Active Substance: IRON
     Dosage: 27 MG, QD
  14. OPSUMIT [Suspect]
     Active Substance: MACITENTAN
     Dosage: 10 MG, QD
     Route: 048
     Dates: start: 20170708, end: 20170709
  15. TORSEMIDE. [Concomitant]
     Active Substance: TORSEMIDE
     Dosage: 40 MG, BID
  16. TORSEMIDE. [Concomitant]
     Active Substance: TORSEMIDE
     Dosage: 20 UNK, UNK
     Dates: end: 201706
  17. VITAMIN C [Concomitant]
     Active Substance: ASCORBIC ACID
     Dosage: UNK

REACTIONS (12)
  - Renal impairment [Recovered/Resolved]
  - Drug hypersensitivity [Unknown]
  - Fluid retention [Recovered/Resolved]
  - Nasal congestion [Unknown]
  - Pyrexia [Recovered/Resolved]
  - Weight decreased [Not Recovered/Not Resolved]
  - Rhinorrhoea [Unknown]
  - Dyspnoea exertional [Unknown]
  - Hypotension [Recovered/Resolved]
  - Cardiac failure congestive [Recovered/Resolved]
  - Endotracheal intubation [Recovered/Resolved]
  - Urinary tract infection [Recovered/Resolved]

NARRATIVE: CASE EVENT DATE: 201706
